FAERS Safety Report 7944136-7 (Version None)
Quarter: 2011Q4

REPORT INFORMATION
  Report Type: 
  Country: None (occurrence: None)
  Receive Date: 20111128
  Receipt Date: 20111116
  Transmission Date: 20120403
  Serious: Yes (Hospitalization)
  Sender: FDA-Public Use
  Company Number: US-ASTRAZENECA-2010SE59016

PATIENT
  Age: 65 Year
  Sex: Female

DRUGS (2)
  1. FOSINOPRIL SODIUM [Concomitant]
  2. CRESTOR [Suspect]
     Route: 048

REACTIONS (10)
  - APHAGIA [None]
  - LIPODYSTROPHY ACQUIRED [None]
  - DIZZINESS [None]
  - MUSCULAR DYSTROPHY [None]
  - WEIGHT DECREASED [None]
  - MUSCULAR WEAKNESS [None]
  - TREMOR [None]
  - COMA [None]
  - SLEEP APNOEA SYNDROME [None]
  - CARDIAC DISORDER [None]
